FAERS Safety Report 8265971-4 (Version None)
Quarter: 2012Q2

REPORT INFORMATION
  Report Type: 
  Country: None (occurrence: None)
  Receive Date: 20120406
  Receipt Date: 20120326
  Transmission Date: 20120825
  Serious: Yes (Other)
  Sender: FDA-Public Use
  Company Number: US-BRISTOL-MYERS SQUIBB COMPANY-16505927

PATIENT
  Age: 55 Year
  Sex: Male

DRUGS (4)
  1. DAPSONE [Interacting]
     Indication: PROPHYLAXIS
     Route: 048
     Dates: start: 20100726
  2. TENOFOVIR DF + EMTRICITABINE [Suspect]
     Indication: ANTIRETROVIRAL THERAPY
     Dosage: 1DF=300/200 MG
     Route: 048
     Dates: start: 20100726
  3. ATAZANAVIR [Interacting]
     Indication: ANTIRETROVIRAL THERAPY
     Route: 048
     Dates: start: 20100726
  4. RITONAVIR [Suspect]
     Indication: ANTIRETROVIRAL THERAPY
     Dates: start: 20100726

REACTIONS (3)
  - DRUG INTERACTION [None]
  - HYPERBILIRUBINAEMIA [None]
  - HAEMOLYTIC ANAEMIA [None]
